FAERS Safety Report 5211280-7 (Version None)
Quarter: 2006Q4

REPORT INFORMATION
  Report Type: 
  Country: None (occurrence: None)
  Receive Date: 20061114
  Receipt Date: 20061002
  Transmission Date: 20070319
  Serious: No
  Sender: FDA-Public Use
  Company Number: S06-USA-04020-01

PATIENT
  Age: 85 Year
  Sex: Female

DRUGS (12)
  1. NAMENDA [Suspect]
     Indication: AMNESIA
     Dosage: 5 MG QD PO
     Route: 048
     Dates: start: 20060901, end: 20060901
  2. NAMENDA [Suspect]
     Indication: AMNESIA
     Dosage: 5 MG BID PO
     Route: 048
     Dates: start: 20060901
  3. METHOTREXATE [Concomitant]
  4. RANITIDINE [Concomitant]
  5. PREMARIN [Concomitant]
  6. LEXAPRO [Concomitant]
  7. DIGOXIN [Concomitant]
  8. FOLIC ACID [Concomitant]
  9. PREDNISONE [Concomitant]
  10. FOSAMAX [Concomitant]
  11. VITAMINS NOS [Concomitant]
  12. CALCIUM [Concomitant]

REACTIONS (4)
  - ABNORMAL DREAMS [None]
  - ASTHENIA [None]
  - EYE MOVEMENT DISORDER [None]
  - FATIGUE [None]
